FAERS Safety Report 4364210-4 (Version None)
Quarter: 2004Q2

REPORT INFORMATION
  Report Type: 
  Country: None (occurrence: None)
  Receive Date: 20040519
  Receipt Date: 20040511
  Transmission Date: 20050107
  Serious: Yes (Other)
  Sender: FDA-Public Use
  Company Number: 2004032240

PATIENT
  Sex: Female

DRUGS (1)
  1. LIPITOR [Suspect]
     Indication: ILL-DEFINED DISORDER
     Dosage: 20 MG (20 MG 1 IN 1 D) ORAL
     Route: 048

REACTIONS (3)
  - MOBILITY DECREASED [None]
  - MUSCLE DISORDER [None]
  - NERVOUSNESS [None]
